FAERS Safety Report 6333228-4 (Version None)
Quarter: 2009Q3

REPORT INFORMATION
  Report Type: 
  Country: None (occurrence: None)
  Receive Date: 20090828
  Receipt Date: 20090818
  Transmission Date: 20100115
  Serious: Yes (Death)
  Sender: FDA-Public Use
  Company Number: US-PFIZER INC-2009240460

PATIENT
  Sex: Female
  Weight: 61.678 kg

DRUGS (2)
  1. REVATIO [Suspect]
     Indication: PULMONARY ARTERIAL HYPERTENSION
     Dosage: 20 MG, 3X/DAY
     Route: 048
     Dates: start: 20080601, end: 20090601
  2. REVATIO [Suspect]
     Indication: COR PULMONALE

REACTIONS (1)
  - DISEASE PROGRESSION [None]
